FAERS Safety Report 17842486 (Version 2)
Quarter: 2020Q2

REPORT INFORMATION
  Report Type: Spontaneous
  Country: US (occurrence: US)
  Receive Date: 20200529
  Receipt Date: 20200619
  Transmission Date: 20200714
  Serious: Yes (Other)
  Sender: FDA-Public Use
  Company Number: NVSC2020US148886

PATIENT
  Age: 85 Year
  Sex: Female

DRUGS (1)
  1. PROMACTA [Suspect]
     Active Substance: ELTROMBOPAG OLAMINE
     Indication: THROMBOCYTOPENIA
     Dosage: UNK UNK, TID
     Route: 048
     Dates: start: 202005

REACTIONS (5)
  - Thrombosis [Not Recovered/Not Resolved]
  - Hypoacusis [Unknown]
  - Feeling hot [Unknown]
  - Pain in extremity [Unknown]
  - General physical health deterioration [Unknown]

NARRATIVE: CASE EVENT DATE: 20200527
